FAERS Safety Report 7592882-X (Version None)
Quarter: 2011Q3

REPORT INFORMATION
  Report Type: 
  Country: None (occurrence: None)
  Receive Date: 20110706
  Receipt Date: 20110630
  Transmission Date: 20111222
  Serious: Yes (Death, Other)
  Sender: FDA-Public Use
  Company Number: US-ROCHE-636709

PATIENT
  Sex: Male

DRUGS (2)
  1. PEGASYS [Suspect]
     Indication: HEPATITIS C
     Route: 065
     Dates: start: 20090116
  2. RIBAVIRIN [Suspect]
     Indication: HEPATITIS C
     Route: 065
     Dates: start: 20090116

REACTIONS (4)
  - PNEUMONIA [None]
  - H1N1 INFLUENZA [None]
  - WHITE BLOOD CELL COUNT DECREASED [None]
  - OXYGEN SATURATION DECREASED [None]
